FAERS Safety Report 10021627 (Version 1)
Quarter: 2014Q1

REPORT INFORMATION
  Report Type: Spontaneous
  Country: US (occurrence: US)
  Receive Date: 20140319
  Receipt Date: 20140319
  Transmission Date: 20141002
  Serious: No
  Sender: FDA-Public Use
  Company Number: US-TEVA-434634USA

PATIENT
  Sex: 0

DRUGS (1)
  1. FLUOCINONIDE [Suspect]
     Indication: DERMATITIS

REACTIONS (2)
  - Dermatitis [Unknown]
  - Drug effect decreased [Unknown]
